FAERS Safety Report 12479821 (Version 1)
Quarter: 2016Q2

REPORT INFORMATION
  Report Type: Spontaneous
  Country: US (occurrence: US)
  Receive Date: 20160620
  Receipt Date: 20160620
  Transmission Date: 20160815
  Serious: No
  Sender: FDA-Public Use
  Company Number: US-TEVA-572470USA

PATIENT
  Sex: Male

DRUGS (1)
  1. ZALEPLON. [Suspect]
     Active Substance: ZALEPLON
     Dates: start: 2014

REACTIONS (3)
  - Product physical issue [Unknown]
  - Renal pain [Unknown]
  - Product odour abnormal [Unknown]
